FAERS Safety Report 5805762-4 (Version None)
Quarter: 2008Q3

REPORT INFORMATION
  Report Type: 
  Country: None (occurrence: None)
  Receive Date: 20080708
  Receipt Date: 20080708
  Transmission Date: 20090109
  Serious: Yes (Hospitalization)
  Sender: FDA-Public Use
  Company Number: None

PATIENT
  Sex: Female
  Weight: 64.5 kg

DRUGS (1)
  1. TEMOZOLOMIDE [Suspect]
     Dosage: 4000 MG

REACTIONS (5)
  - BRAIN NEOPLASM [None]
  - CONDITION AGGRAVATED [None]
  - NAUSEA [None]
  - PYREXIA [None]
  - VOMITING [None]
